FAERS Safety Report 8106421-8 (Version None)
Quarter: 2012Q1

REPORT INFORMATION
  Report Type: 
  Country: None (occurrence: None)
  Receive Date: 20120202
  Receipt Date: 20120125
  Transmission Date: 20120608
  Serious: Yes (Hospitalization, Other)
  Sender: FDA-Public Use
  Company Number: US-US-EMD SERONO, INC.-7109118

PATIENT
  Sex: Male
  Weight: 95 kg

DRUGS (8)
  1. REBIF [Suspect]
     Indication: MULTIPLE SCLEROSIS
     Route: 058
     Dates: start: 20111122
  2. REBIF [Suspect]
     Route: 058
     Dates: end: 20120125
  3. ANDROGEL [Concomitant]
  4. TRAZODONE HCL [Concomitant]
     Dosage: AT BEDTIME
  5. ADDERALL 5 [Concomitant]
  6. CYTOMEL [Concomitant]
     Indication: HYPOTHYROIDISM
  7. RITUXIMAB [Suspect]
     Indication: PRODUCT USED FOR UNKNOWN INDICATION
  8. PARNATE [Concomitant]

REACTIONS (6)
  - SEPSIS [None]
  - SLEEP APNOEA SYNDROME [None]
  - ASPIRATION [None]
  - DEPRESSION [None]
  - FATIGUE [None]
  - PNEUMONIA [None]
